FAERS Safety Report 19829254 (Version 2)
Quarter: 2023Q2

REPORT INFORMATION
  Report Type: Report from Study
  Country: NL (occurrence: NL)
  Receive Date: 20210914
  Receipt Date: 20230417
  Transmission Date: 20230721
  Serious: Yes (Hospitalization, Other)
  Sender: FDA-Public Use
  Company Number: NL-002147023-NVSC2021NL078765

PATIENT
  Age: 64 Year
  Sex: Male
  Weight: 74 kg

DRUGS (13)
  1. BACLOFEN [Suspect]
     Active Substance: BACLOFEN
     Indication: Neuralgia
     Dosage: 10 MILLIGRAM, QD, 5 MG, BID
     Route: 065
     Dates: start: 20210224, end: 20210305
  2. AMITRIPTYLINE [Suspect]
     Active Substance: AMITRIPTYLINE
     Indication: Neuralgia
     Dosage: 25 MILLIGRAM, QD, 25 MG, QD
     Route: 065
     Dates: start: 20200401, end: 20210305
  3. THIAMINE [Concomitant]
     Active Substance: THIAMINE
     Indication: Product used for unknown indication
     Dosage: 100 MILLIGRAM, QD, 100 MG, QD
     Route: 065
  4. CHOLECALCIFEROL [Concomitant]
     Active Substance: CHOLECALCIFEROL
     Indication: Product used for unknown indication
     Dosage: 5600 E 1/7 DAYS UNK
     Route: 065
  5. METOPROLOL [Concomitant]
     Active Substance: METOPROLOL
     Indication: Product used for unknown indication
     Dosage: 50 MILLIGRAM, QD, 50 MG, QD
     Route: 065
  6. PREGABALIN [Concomitant]
     Active Substance: PREGABALIN
     Indication: Neuralgia
     Dosage: 300 MILLIGRAM, QD, 150 MG, BID
     Route: 065
     Dates: start: 20191101, end: 20210305
  7. ATORVASTATIN [Concomitant]
     Active Substance: ATORVASTATIN
     Indication: Dyslipidaemia
     Dosage: 40 MILLIGRAM, QD, 40 MG, QD
     Route: 065
     Dates: start: 20190801, end: 20210305
  8. METFORMIN HYDROCHLORIDE [Concomitant]
     Active Substance: METFORMIN HYDROCHLORIDE
     Indication: Product used for unknown indication
     Dosage: 1500 MILLIGRAM, QD, 500 MG, TID
     Route: 065
  9. PANTOPRAZOLE [Concomitant]
     Active Substance: PANTOPRAZOLE
     Indication: Product used for unknown indication
     Dosage: 20 MILLIGRAM, QD, 20 MG, QD
     Route: 065
  10. BUPRENORPHINE [Concomitant]
     Active Substance: BUPRENORPHINE
     Indication: Product used for unknown indication
     Dosage: 20 MICROGRAM/ U PATCH FOR 7 DAYS
     Route: 065
  11. TEMAZEPAM [Concomitant]
     Active Substance: TEMAZEPAM
     Indication: Product used for unknown indication
     Dosage: 20 MILLIGRAM, QD, 20 MG, QD
     Route: 065
  12. GLICLAZIDE [Concomitant]
     Active Substance: GLICLAZIDE
     Indication: Product used for unknown indication
     Dosage: UNK
     Route: 065
  13. Ascal [Concomitant]
     Indication: Product used for unknown indication
     Dosage: 80 MILLIGRAM, QD, 80 MG, QD
     Route: 065

REACTIONS (10)
  - Pyrexia [Recovered/Resolved]
  - Hepatitis E [Recovered/Resolved]
  - Bradyphrenia [Unknown]
  - Walking disability [Unknown]
  - Encephalopathy [Recovered/Resolved]
  - Urinary retention [Unknown]
  - Abdominal pain upper [Unknown]
  - Diabetic neuropathy [Unknown]
  - Hypoglycaemia [Unknown]
  - Drug-induced liver injury [Unknown]

NARRATIVE: CASE EVENT DATE: 20210305
